FAERS Safety Report 6345287-3 (Version None)
Quarter: 2009Q3

REPORT INFORMATION
  Report Type: 
  Country: None (occurrence: None)
  Receive Date: 20090821
  Receipt Date: 20090622
  Transmission Date: 20100115
  Serious: No
  Sender: FDA-Public Use
  Company Number: 8048134

PATIENT
  Sex: Female

DRUGS (7)
  1. CIMZIA [Suspect]
     Indication: CROHN'S DISEASE
     Dosage: 400 MG SC
     Route: 058
     Dates: start: 20081201
  2. XANAX [Concomitant]
  3. FOLIC ACID [Concomitant]
  4. DOXYCYCLINE HYCLATE [Concomitant]
  5. ASACOL [Concomitant]
  6. CELEXA [Concomitant]
  7. MUPIROCIN [Concomitant]

REACTIONS (1)
  - FURUNCLE [None]
